FAERS Safety Report 7482333-8 (Version None)
Quarter: 2011Q2

REPORT INFORMATION
  Report Type: 
  Country: None (occurrence: None)
  Receive Date: 20110516
  Receipt Date: 20110510
  Transmission Date: 20111010
  Serious: Yes (Other)
  Sender: FDA-Public Use
  Company Number: US-PFIZER INC-2011100553

PATIENT
  Sex: Male
  Weight: 68.027 kg

DRUGS (6)
  1. GEODON [Suspect]
     Indication: BIPOLAR DISORDER
     Dosage: 80 MG, 3X/DAY
     Route: 048
  2. PRAVASTATIN [Concomitant]
     Dosage: UNK
  3. XANAX [Concomitant]
     Dosage: UNK
  4. LITHIUM [Concomitant]
     Dosage: UNK, 2X/DAY
  5. DEPAKOTE [Concomitant]
  6. TRAZODONE [Concomitant]
     Dosage: UNK

REACTIONS (3)
  - MUSCLE TWITCHING [None]
  - DYSKINESIA [None]
  - DRUG INEFFECTIVE [None]
